FAERS Safety Report 4688174-9 (Version None)
Quarter: 2005Q2

REPORT INFORMATION
  Report Type: 
  Country: None (occurrence: None)
  Receive Date: 20050609
  Receipt Date: 20050601
  Transmission Date: 20051028
  Serious: Yes (Hospitalization)
  Sender: FDA-Public Use
  Company Number: TPA2005A00400

PATIENT
  Age: 73 Year
  Sex: Male
  Weight: 95.2554 kg

DRUGS (7)
  1. ACTOS [Suspect]
     Indication: DIABETES MELLITUS NON-INSULIN-DEPENDENT
     Dosage: 15 MG, 1 IN 1 D, PER ORAL
     Route: 048
     Dates: start: 20040114
  2. NOVOLOG MIX 70/30 [Suspect]
     Indication: DIABETES MELLITUS
     Dosage: 46 IU, 1 IN 1 D, SUBCUTANEOUS
     Route: 058
     Dates: start: 20040601
  3. MICARDIS (TELMISARTAN) (80 MILLIGRAM) [Concomitant]
  4. FLOMAX (TAMSULOSIN) (4 MILLIGRAM) [Concomitant]
  5. LASIX (FUROSEMIDE) (20 MILLIGRAM) [Concomitant]
  6. VICODIN ES [Concomitant]
  7. PLAVIX (CLOPIDOGREL SULFATE) (75 MILLIGRAM) [Concomitant]

REACTIONS (4)
  - BLOOD GLUCOSE DECREASED [None]
  - CARDIAC DISORDER [None]
  - CORONARY ARTERY OCCLUSION [None]
  - WEIGHT INCREASED [None]
